FAERS Safety Report 4385447-4 (Version None)
Quarter: 2004Q2

REPORT INFORMATION
  Report Type: 
  Country: None (occurrence: None)
  Receive Date: 20040622
  Receipt Date: 20040616
  Transmission Date: 20050107
  Serious: Yes (Hospitalization)
  Sender: FDA-Public Use
  Company Number: S04-USA-02172-01

PATIENT
  Age: 38 Year
  Sex: Male

DRUGS (6)
  1. LEXAPRO [Suspect]
     Indication: DEPRESSION
     Dates: start: 20040419, end: 20040419
  2. LEXAPRO [Suspect]
     Indication: DEPRESSION
     Dosage: 10 MG QD PO
     Route: 048
  3. DEPAKOTE [Suspect]
  4. ZYPREXA [Suspect]
     Indication: OVERDOSE
     Dates: start: 20040419, end: 20040419
  5. ALCOHOL [Suspect]
     Dates: start: 20040419, end: 20040419
  6. COCAINE [Suspect]
     Dates: start: 20040419

REACTIONS (8)
  - ALCOHOL USE [None]
  - COMA [None]
  - DEPRESSED LEVEL OF CONSCIOUSNESS [None]
  - DRUG ABUSER [None]
  - ELECTROCARDIOGRAM ST SEGMENT [None]
  - MEDICATION ERROR [None]
  - MULTIPLE DRUG OVERDOSE [None]
  - SELF-MEDICATION [None]
